FAERS Safety Report 7074609-3 (Version None)
Quarter: 2010Q4

REPORT INFORMATION
  Report Type: 
  Country: None (occurrence: None)
  Receive Date: 20101029
  Receipt Date: 20101025
  Transmission Date: 20110411
  Serious: Yes (Hospitalization, Disabling, Congenital Anomaly)
  Sender: FDA-Public Use
  Company Number: A0812094A

PATIENT
  Sex: Female
  Weight: 3.8 kg

DRUGS (2)
  1. PAXIL [Suspect]
     Indication: DEPRESSION
     Dosage: 30MG IN THE MORNING
  2. PRENATAL VITAMINS [Concomitant]

REACTIONS (13)
  - AORTA HYPOPLASIA [None]
  - ATRIAL SEPTAL DEFECT [None]
  - CEREBRAL PALSY [None]
  - CEREBROVASCULAR ACCIDENT [None]
  - COARCTATION OF THE AORTA [None]
  - CONGENITAL TRICUSPID VALVE ATRESIA [None]
  - DEVELOPMENTAL DELAY [None]
  - DRUG EXPOSURE DURING PREGNANCY [None]
  - MULTIPLE CONGENITAL ABNORMALITIES [None]
  - PARALYSIS [None]
  - TETHERED CORD SYNDROME [None]
  - TRANSPOSITION OF THE GREAT VESSELS [None]
  - VENTRICULAR SEPTAL DEFECT [None]
